FAERS Safety Report 4623251-X (Version None)
Quarter: 2005Q1

REPORT INFORMATION
  Report Type: 
  Country: None (occurrence: None)
  Receive Date: 20050329
  Receipt Date: 20050316
  Transmission Date: 20050727
  Serious: Yes (Disabling, Other)
  Sender: FDA-Public Use
  Company Number: 2005047460

PATIENT
  Age: 78 Year
  Sex: Female
  Weight: 72.5755 kg

DRUGS (4)
  1. CELEBREX [Suspect]
     Indication: PAIN
     Dosage: (200 MG, 1 IN 1 D)
     Dates: start: 19980101
  2. DRUG USED IN DIABETES (DRUG USED IN DIABETES) [Suspect]
     Indication: DIABETES MELLITUS
  3. GENERAL NUTRIENTS (GENERAL NUTRIENTS) [Concomitant]
  4. LEVOTHYROXINE SODIUM [Concomitant]

REACTIONS (10)
  - ALOPECIA [None]
  - BLINDNESS UNILATERAL [None]
  - CATARACT [None]
  - COLITIS ULCERATIVE [None]
  - DIABETES MELLITUS [None]
  - DRUG INEFFECTIVE [None]
  - DRUG INTERACTION [None]
  - HYPERTENSION [None]
  - MALAISE [None]
  - RETINAL HAEMORRHAGE [None]
